FAERS Safety Report 6062264-0 (Version None)
Quarter: 2009Q1

REPORT INFORMATION
  Report Type: 
  Country: None (occurrence: None)
  Receive Date: 20090203
  Receipt Date: 20090127
  Transmission Date: 20090719
  Serious: Yes (Death, Disabling, Other)
  Sender: FDA-Public Use
  Company Number: US-CELGENEUS-163-21880-08050757

PATIENT
  Sex: Female

DRUGS (6)
  1. REVLIMID [Suspect]
     Route: 048
     Dates: start: 20080422
  2. REVLIMID [Suspect]
     Dosage: 5MG ALTERNATING WITH 10MG
     Route: 048
     Dates: start: 20080601, end: 20080616
  3. PERCOCET [Concomitant]
     Indication: DRUG USE FOR UNKNOWN INDICATION
     Route: 065
  4. OXYCONTIN [Concomitant]
     Indication: DRUG USE FOR UNKNOWN INDICATION
     Route: 065
  5. MUSCLE RELAXANT [Concomitant]
     Indication: DRUG USE FOR UNKNOWN INDICATION
     Route: 065
  6. EXJADE [Concomitant]
     Indication: IRON OVERLOAD
     Route: 065
     Dates: end: 20080616

REACTIONS (11)
  - APHASIA [None]
  - COORDINATION ABNORMAL [None]
  - DIZZINESS [None]
  - GAIT DISTURBANCE [None]
  - HAEMOGLOBIN DECREASED [None]
  - JOINT SWELLING [None]
  - MYELODYSPLASTIC SYNDROME [None]
  - NAUSEA [None]
  - OEDEMA PERIPHERAL [None]
  - PANCYTOPENIA [None]
  - UROSEPSIS [None]
